FAERS Safety Report 6109069-X (Version None)
Quarter: 2009Q1

REPORT INFORMATION
  Report Type: 
  Country: None (occurrence: None)
  Receive Date: 20090310
  Receipt Date: 20090227
  Transmission Date: 20090719
  Serious: Yes (Other)
  Sender: FDA-Public Use
  Company Number: CA-ELI_LILLY_AND_COMPANY-CA200903000358

PATIENT
  Age: 32 Year
  Sex: Female

DRUGS (5)
  1. FORTEO [Suspect]
     Indication: OSTEOPOROSIS
     Dosage: 20 UG, DAILY (1/D)
     Route: 058
     Dates: start: 20041008, end: 20060401
  2. ACTONEL [Concomitant]
  3. PREVACID [Concomitant]
  4. VITAMIN B-12 [Concomitant]
     Dosage: UNK, MONTHLY (1/M)
  5. IRON [Concomitant]
     Dosage: UNK, MONTHLY (1/M)

REACTIONS (3)
  - HIP FRACTURE [None]
  - MUSCULOSKELETAL DISCOMFORT [None]
  - TIBIA FRACTURE [None]
